FAERS Safety Report 5979106-1 (Version None)
Quarter: 2008Q4

REPORT INFORMATION
  Report Type: 
  Country: None (occurrence: None)
  Receive Date: 20081204
  Receipt Date: 20080728
  Transmission Date: 20090506
  Serious: No
  Sender: FDA-Public Use
  Company Number: US-ABBOTT-08P-163-0466445-00

PATIENT
  Sex: Male

DRUGS (3)
  1. TRICOR [Suspect]
     Indication: BLOOD TRIGLYCERIDES INCREASED
     Route: 048
     Dates: start: 20080601
  2. TRICOR [Suspect]
     Indication: HIGH DENSITY LIPOPROTEIN DECREASED
  3. TRICOR [Suspect]
     Indication: LOW DENSITY LIPOPROTEIN INCREASED

REACTIONS (2)
  - HIGH DENSITY LIPOPROTEIN DECREASED [None]
  - LOW DENSITY LIPOPROTEIN INCREASED [None]
